FAERS Safety Report 7632349-3 (Version None)
Quarter: 2011Q3

REPORT INFORMATION
  Report Type: 
  Country: None (occurrence: None)
  Receive Date: 20110725
  Receipt Date: 20100810
  Transmission Date: 20111222
  Serious: No
  Sender: FDA-Public Use
  Company Number: US-BRISTOL-MYERS SQUIBB COMPANY-15234347

PATIENT
  Age: 85 Year
  Sex: Male
  Weight: 64 kg

DRUGS (8)
  1. COUMADIN [Suspect]
     Dosage: 4MG ON SUNDAY AND 2MG FOR REST OF THE WEEK.
  2. DOXAZOSIN MESYLATE [Concomitant]
  3. CALCIUM CARBONATE [Concomitant]
  4. WARFARIN SODIUM [Suspect]
  5. ASPIRIN [Suspect]
  6. PRAVASTATIN SODIUM [Concomitant]
  7. PRILOSEC [Concomitant]
  8. METOPROLOL TARTRATE [Concomitant]

REACTIONS (1)
  - HAEMORRHAGE SUBCUTANEOUS [None]
